FAERS Safety Report 18148248 (Version 1)
Quarter: 2020Q3

REPORT INFORMATION
  Report Type: Spontaneous
  Country: CA (occurrence: CA)
  Receive Date: 20200814
  Receipt Date: 20200814
  Transmission Date: 20201103
  Serious: Yes (Other)
  Sender: FDA-Public Use
  Company Number: CA-TEVA-2020-CA-1813406

PATIENT
  Age: 93 Year
  Sex: Female

DRUGS (2)
  1. TRAMADOL HYDROCHLORIDE. [Concomitant]
     Active Substance: TRAMADOL HYDROCHLORIDE
  2. VALACYCLOVIR [Suspect]
     Active Substance: VALACYCLOVIR HYDROCHLORIDE
     Indication: HERPES VIRUS INFECTION
     Dosage: 3000 MILLIGRAM DAILY;
     Route: 048

REACTIONS (5)
  - Delirium [Unknown]
  - Confusional state [Unknown]
  - Blood creatinine increased [Unknown]
  - Incorrect dosage administered [Unknown]
  - Fall [Unknown]
